FAERS Safety Report 23640891 (Version 1)
Quarter: 2024Q1

REPORT INFORMATION
  Report Type: Spontaneous
  Country: US (occurrence: US)
  Receive Date: 20240318
  Receipt Date: 20240318
  Transmission Date: 20240409
  Serious: No
  Sender: FDA-Public Use
  Company Number: US-GLENMARK PHARMACEUTICALS-2024GMK088799

PATIENT

DRUGS (1)
  1. ROPINIROLE HYDROCHLORIDE [Suspect]
     Active Substance: ROPINIROLE HYDROCHLORIDE
     Indication: Restless legs syndrome
     Dosage: 1 DOSAGE FORM AT NIGHT (1 HOUR PRIOR GOING TO BED)
     Route: 048
     Dates: start: 20240124, end: 20240127

REACTIONS (5)
  - Insomnia [Unknown]
  - Tension [Unknown]
  - Product substitution issue [Unknown]
  - Product formulation issue [Unknown]
  - Drug ineffective [Unknown]

NARRATIVE: CASE EVENT DATE: 20240101
